FAERS Safety Report 8009850-6 (Version None)
Quarter: 2011Q4

REPORT INFORMATION
  Report Type: 
  Country: None (occurrence: None)
  Receive Date: 20111228
  Receipt Date: 20111217
  Transmission Date: 20120403
  Serious: Yes (Hospitalization, Other)
  Sender: FDA-Public Use
  Company Number: US-PAR PHARMACEUTICAL, INC-2011SCPR003554

PATIENT

DRUGS (3)
  1. AMLODIPINE [Suspect]
     Indication: PRODUCT USED FOR UNKNOWN INDICATION
     Dosage: 600 MG, UNKNOWN
     Route: 048
  2. CLONAZEPAM [Suspect]
     Indication: PRODUCT USED FOR UNKNOWN INDICATION
     Dosage: 60 MG, UNKNOWN
     Route: 048
  3. TRAMADOL HCL [Suspect]
     Indication: PRODUCT USED FOR UNKNOWN INDICATION
     Dosage: 500 MG, UNKNOWN
     Route: 048

REACTIONS (6)
  - RENAL FAILURE ACUTE [None]
  - NON-CARDIOGENIC PULMONARY OEDEMA [None]
  - NODAL RHYTHM [None]
  - SUICIDE ATTEMPT [None]
  - RESPIRATORY FAILURE [None]
  - MULTIPLE DRUG OVERDOSE INTENTIONAL [None]
